FAERS Safety Report 10705232 (Version 1)
Quarter: 2015Q1

REPORT INFORMATION
  Report Type: Report from Study
  Country: US (occurrence: US)
  Receive Date: 20150112
  Receipt Date: 20150112
  Transmission Date: 20150721
  Serious: No
  Sender: FDA-Public Use
  Company Number: US-VERTEX PHARMACEUTICALS-2015-000071

PATIENT
  Sex: Female

DRUGS (1)
  1. IVACAFTOR [Suspect]
     Active Substance: IVACAFTOR
     Indication: CYSTIC FIBROSIS
     Dosage: UNK
     Route: 048
     Dates: start: 20121010

REACTIONS (5)
  - Cough [Recovering/Resolving]
  - Asthenia [Recovering/Resolving]
  - Nasal congestion [Not Recovered/Not Resolved]
  - Pyrexia [Recovering/Resolving]
  - Dysphonia [Recovering/Resolving]
